FAERS Safety Report 9937019 (Version 1)
Quarter: 2014Q1

REPORT INFORMATION
  Report Type: Spontaneous
  Country: US (occurrence: None)
  Receive Date: 20140116
  Receipt Date: 20140116
  Transmission Date: 20141002
  Serious: Yes (Hospitalization)
  Sender: FDA-Public Use
  Company Number: E2B_00000927

PATIENT
  Age: 15 Month
  Sex: Male
  Weight: 13.15 kg

DRUGS (1)
  1. CEFDINIR [Suspect]
     Indication: SINUSITIS
     Route: 048
     Dates: start: 20130522, end: 20130529

REACTIONS (2)
  - Urticaria [None]
  - Skin discolouration [None]
